FAERS Safety Report 21704538 (Version 1)
Quarter: 2022Q4

REPORT INFORMATION
  Report Type: Spontaneous
  Country: BE (occurrence: BE)
  Receive Date: 20221209
  Receipt Date: 20221209
  Transmission Date: 20230112
  Serious: Yes (Hospitalization, Other)
  Sender: FDA-Public Use
  Company Number: BE-TAKEDA-2022TUS092866

PATIENT
  Age: 55 Year
  Sex: Female

DRUGS (1)
  1. ENTYVIO [Suspect]
     Active Substance: VEDOLIZUMAB
     Indication: Crohn^s disease
     Dosage: UNK
     Route: 065

REACTIONS (6)
  - Anaphylactic reaction [Unknown]
  - Hyperventilation [Unknown]
  - Muscle contracture [Unknown]
  - Anxiety [Unknown]
  - Amnesia [Unknown]
  - Paraesthesia [Unknown]

NARRATIVE: CASE EVENT DATE: 20221114
